FAERS Safety Report 7865168-3 (Version None)
Quarter: 2011Q4

REPORT INFORMATION
  Report Type: 
  Country: None (occurrence: None)
  Receive Date: 20111028
  Receipt Date: 20101025
  Transmission Date: 20120403
  Serious: Yes (Hospitalization)
  Sender: FDA-Public Use
  Company Number: US-GLAXOSMITHKLINE-A0888668A

PATIENT
  Age: 84 Year
  Sex: Male

DRUGS (13)
  1. UNSPECIFIED MEDICATIONS [Concomitant]
  2. NEXIUM [Concomitant]
  3. COREG [Concomitant]
  4. ALLOPURINOL [Concomitant]
  5. FUROSEMIDE [Concomitant]
  6. SODIUM CARBONATE [Concomitant]
  7. VITAMIN TAB [Concomitant]
  8. THERAGRAN MULTI VITAMIN [Concomitant]
  9. FLUTICASONE PROPIONATE [Concomitant]
  10. LISINOPRIL [Concomitant]
  11. ADVAIR DISKUS 100/50 [Suspect]
     Indication: LUNG DISORDER
     Dosage: 1PUFF TWICE PER DAY
     Route: 055
     Dates: start: 20100101
  12. UNSPECIFIED MEDICATION [Concomitant]
  13. GARLIC PILLS [Concomitant]

REACTIONS (1)
  - PNEUMONIA BACTERIAL [None]
